FAERS Safety Report 13954618 (Version 2)
Quarter: 2017Q3

REPORT INFORMATION
  Report Type: Report from Study
  Country: US (occurrence: US)
  Receive Date: 20170911
  Receipt Date: 20170928
  Transmission Date: 20171128
  Serious: No
  Sender: FDA-Public Use
  Company Number: US-AMGEN-USASL2017135859

PATIENT
  Sex: Female

DRUGS (1)
  1. ENBREL [Suspect]
     Active Substance: ETANERCEPT
     Indication: PSORIATIC ARTHROPATHY
     Dosage: 50 MG, QWK
     Route: 058
     Dates: end: 20170824

REACTIONS (6)
  - Injection site swelling [Unknown]
  - Injection site rash [Not Recovered/Not Resolved]
  - Injection site erythema [Unknown]
  - Injection site pruritus [Unknown]
  - Injection site pain [Unknown]
  - Injection site reaction [Unknown]
